FAERS Safety Report 6930323-3 (Version None)
Quarter: 2010Q3

REPORT INFORMATION
  Report Type: 
  Country: None (occurrence: None)
  Receive Date: 20100818
  Receipt Date: 20100811
  Transmission Date: 20110219
  Serious: Yes (Other)
  Sender: FDA-Public Use
  Company Number: US-SANOFI-AVENTIS-2010SA045172

PATIENT
  Age: 50 Year
  Sex: Male

DRUGS (7)
  1. MULTAQ [Suspect]
     Indication: ATRIAL FIBRILLATION
     Route: 048
     Dates: start: 20100401
  2. VYTORIN [Concomitant]
  3. ASPIRIN [Concomitant]
  4. NEBIVOLOL [Concomitant]
  5. LASIX [Concomitant]
  6. TIOTROPIUM BROMIDE [Concomitant]
  7. FISH OIL [Concomitant]

REACTIONS (3)
  - BRAIN NATRIURETIC PEPTIDE INCREASED [None]
  - CARDIAC FAILURE CONGESTIVE [None]
  - WEIGHT INCREASED [None]
